FAERS Safety Report 6970109-7 (Version None)
Quarter: 2010Q3

REPORT INFORMATION
  Report Type: 
  Country: None (occurrence: None)
  Receive Date: 20100908
  Receipt Date: 20100826
  Transmission Date: 20110219
  Serious: Yes (Other)
  Sender: FDA-Public Use
  Company Number: US-ELI_LILLY_AND_COMPANY-US201008008067

PATIENT
  Sex: Female

DRUGS (1)
  1. CYMBALTA [Suspect]

REACTIONS (8)
  - BLOOD PRESSURE INCREASED [None]
  - BLOOD URINE PRESENT [None]
  - EPISTAXIS [None]
  - GINGIVAL BLEEDING [None]
  - HEPATOMEGALY [None]
  - HYPERHIDROSIS [None]
  - LIVER DISORDER [None]
  - RECTAL HAEMORRHAGE [None]
